FAERS Safety Report 17470539 (Version 1)
Quarter: 2020Q1

REPORT INFORMATION
  Report Type: Spontaneous
  Country: US (occurrence: US)
  Receive Date: 20200227
  Receipt Date: 20200227
  Transmission Date: 20200409
  Serious: No
  Sender: FDA-Public Use
  Company Number: US-JAZZ-2019-US-012946

PATIENT
  Age: 41 Year
  Sex: Female

DRUGS (2)
  1. DIVALPROEX SODIUM. [Concomitant]
     Active Substance: DIVALPROEX SODIUM
     Indication: AFFECTIVE DISORDER
  2. CLOZAPINE. [Suspect]
     Active Substance: CLOZAPINE
     Indication: SCHIZOAFFECTIVE DISORDER BIPOLAR TYPE
     Dosage: 175 MG/DAY
     Route: 048

REACTIONS (6)
  - Constipation [Unknown]
  - Drug ineffective [Unknown]
  - Malaise [Unknown]
  - Sedation [Unknown]
  - Vision blurred [Unknown]
  - Tachycardia [Unknown]
